FAERS Safety Report 5356879-2 (Version None)
Quarter: 2007Q2

REPORT INFORMATION
  Report Type: 
  Country: None (occurrence: None)
  Receive Date: 20070614
  Receipt Date: 20070329
  Transmission Date: 20071010
  Serious: No
  Sender: FDA-Public Use
  Company Number: US-ASTRAZENECA-2007UW06419

PATIENT
  Age: 55 Year
  Sex: Female

DRUGS (3)
  1. ATACAND [Suspect]
     Indication: BLOOD PRESSURE INADEQUATELY CONTROLLED
     Route: 048
  2. ATACAND HCT [Suspect]
     Indication: BLOOD PRESSURE INADEQUATELY CONTROLLED
     Dates: start: 20060901
  3. LYRICA [Concomitant]
     Indication: PAIN

REACTIONS (1)
  - HYPOAESTHESIA [None]
